FAERS Safety Report 4957919-2 (Version None)
Quarter: 2006Q1

REPORT INFORMATION
  Report Type: 
  Country: None (occurrence: None)
  Receive Date: 20060127
  Receipt Date: 20050721
  Transmission Date: 20060701
  Serious: Yes (Hospitalization)
  Sender: FDA-Public Use
  Company Number: 05-07-1293

PATIENT
  Age: 35 Year
  Sex: Female
  Weight: 120.2032 kg

DRUGS (2)
  1. CLOZAPINE [Suspect]
     Indication: BIPOLAR DISORDER
     Dosage: 200 MG QHS ORAL
     Route: 048
     Dates: start: 20030601
  2. CLOZAPINE [Suspect]
     Indication: SCHIZOAFFECTIVE DISORDER
     Dosage: 200 MG QHS ORAL
     Route: 048
     Dates: start: 20030601

REACTIONS (1)
  - TREATMENT NONCOMPLIANCE [None]
